FAERS Safety Report 20202745 (Version 1)
Quarter: 2021Q4

REPORT INFORMATION
  Report Type: Spontaneous
  Country: US (occurrence: US)
  Receive Date: 20211218
  Receipt Date: 20211218
  Transmission Date: 20220303
  Serious: No
  Sender: FDA-Public Use
  Company Number: US-SANOFI-00891453

PATIENT
  Sex: Female

DRUGS (1)
  1. NASACORT ALLERGY 24HR [Suspect]
     Active Substance: TRIAMCINOLONE ACETONIDE
     Indication: Multiple allergies
     Dosage: 2 PUFFS EACH NOSTRIL PER DAY

REACTIONS (2)
  - Product odour abnormal [Unknown]
  - Drug ineffective [Unknown]
